FAERS Safety Report 8502866-2 (Version None)
Quarter: 2012Q3

REPORT INFORMATION
  Report Type: 
  Country: None (occurrence: None)
  Receive Date: 20120711
  Receipt Date: 20120705
  Transmission Date: 20120928
  Serious: Yes (Death, Hospitalization)
  Sender: FDA-Public Use
  Company Number: US-GENZYME-MOZO-1000655

PATIENT
  Age: 74 Year
  Sex: Female
  Weight: 67.6 kg

DRUGS (18)
  1. MOZOBIL [Suspect]
     Dosage: 22840 MCG, QD
     Route: 042
     Dates: start: 20120131, end: 20120201
  2. VITAMIN D [Concomitant]
     Indication: PRODUCT USED FOR UNKNOWN INDICATION
     Dosage: 2000 U, QD
     Route: 048
  3. HEPARIN LOCK-FLUSH [Concomitant]
     Indication: INTRAVENOUS CATHETER MANAGEMENT
  4. MAGIC MOUTHWASH [Concomitant]
     Indication: PRODUCT USED FOR UNKNOWN INDICATION
     Dosage: 1 OTHER, Q2HR
     Route: 050
  5. HP SUPPLEMENT [Concomitant]
     Indication: PRODUCT USED FOR UNKNOWN INDICATION
     Dosage: 8 OTHER, TID
     Route: 065
  6. MIRALAX [Concomitant]
     Indication: PRODUCT USED FOR UNKNOWN INDICATION
     Dosage: 17 G, QD
     Route: 048
  7. STEROID THERAPY [Concomitant]
     Indication: CONTRAST MEDIA ALLERGY
  8. FLUORODEOXYGLUCOSE F 18 [Concomitant]
     Indication: POSITRON EMISSION TOMOGRAM
     Dosage: 13.2 MCI, UNK
     Route: 042
     Dates: start: 20120207, end: 20120207
  9. OXYCODONE HCL [Concomitant]
     Indication: PRODUCT USED FOR UNKNOWN INDICATION
     Dosage: 5 MG, PRN
     Route: 048
  10. OXYCODONE HCL [Concomitant]
     Dosage: 10 MG, PRN
     Route: 048
  11. ACETAMINOPHEN [Concomitant]
     Indication: PRODUCT USED FOR UNKNOWN INDICATION
     Dosage: UNK
     Route: 065
  12. FUROSEMIDE [Concomitant]
     Indication: PRODUCT USED FOR UNKNOWN INDICATION
     Dosage: 40 MG, BID
     Route: 065
  13. MOZOBIL [Suspect]
     Indication: DIFFUSE LARGE B-CELL LYMPHOMA
     Dosage: 22840 MCG, QD
     Route: 042
     Dates: start: 20120130, end: 20120130
  14. CALCIUM CITRATE [Concomitant]
     Indication: PRODUCT USED FOR UNKNOWN INDICATION
     Dosage: 500 MG, QD
     Route: 048
  15. MOZOBIL [Suspect]
     Indication: HAEMATOPOIETIC STEM CELL MOBILISATION
     Dosage: 13704 MCG, ONCE
     Route: 058
     Dates: start: 20120125, end: 20120125
  16. FILGRASTIM [Suspect]
     Indication: HAEMATOPOIETIC STEM CELL MOBILISATION
     Dosage: 570 MCG, QD
     Route: 058
     Dates: start: 20120125, end: 20120201
  17. POTASSIUM CHLORIDE [Concomitant]
     Indication: PRODUCT USED FOR UNKNOWN INDICATION
     Dosage: 20 MEQ, BID
     Route: 065
  18. COLACE [Concomitant]
     Indication: PRODUCT USED FOR UNKNOWN INDICATION
     Dosage: 100 MG, PRN

REACTIONS (15)
  - URINARY TRACT INFECTION BACTERIAL [None]
  - ATELECTASIS [None]
  - HYPERCALCAEMIA [None]
  - PLEURAL EFFUSION [None]
  - THROMBOCYTOPENIA [None]
  - HYPOMAGNESAEMIA [None]
  - HYPERGLYCAEMIA [None]
  - DIFFUSE LARGE B-CELL LYMPHOMA [None]
  - SPLENIC HAEMORRHAGE [None]
  - HYPOTENSION [None]
  - DECUBITUS ULCER [None]
  - DEHYDRATION [None]
  - ASCITES [None]
  - GENERAL PHYSICAL HEALTH DETERIORATION [None]
  - DIARRHOEA [None]
